FAERS Safety Report 8075078-7 (Version None)
Quarter: 2012Q1

REPORT INFORMATION
  Report Type: 
  Country: None (occurrence: None)
  Receive Date: 20120127
  Receipt Date: 20120119
  Transmission Date: 20120608
  Serious: No
  Sender: FDA-Public Use
  Company Number: US-BIOGENIDEC-2012BI002506

PATIENT
  Age: 47 Year
  Sex: Female

DRUGS (1)
  1. TYSABRI [Suspect]
     Indication: MULTIPLE SCLEROSIS
     Route: 042
     Dates: start: 20090101

REACTIONS (6)
  - PAIN [None]
  - HYPERHIDROSIS [None]
  - CHEST DISCOMFORT [None]
  - CHILLS [None]
  - RESPIRATORY TRACT CONGESTION [None]
  - DIARRHOEA [None]
